FAERS Safety Report 9103137 (Version 2)
Quarter: 2013Q1

REPORT INFORMATION
  Report Type: Spontaneous
  Country: JP (occurrence: JP)
  Receive Date: 20130219
  Receipt Date: 20130320
  Transmission Date: 20140127
  Serious: Yes (Hospitalization)
  Sender: FDA-Public Use
  Company Number: JP-ELI_LILLY_AND_COMPANY-JP201302002462

PATIENT
  Age: 59 Year
  Sex: Male
  Weight: 49.4 kg

DRUGS (13)
  1. HUMALOG LISPRO [Suspect]
     Indication: DIABETES MELLITUS
     Dosage: 2 IU, EACH MORNING
     Route: 058
     Dates: start: 200905, end: 200905
  2. HUMALOG LISPRO [Suspect]
     Dosage: 4 IU, EACH MORNING
     Route: 058
     Dates: start: 200905, end: 200905
  3. HUMALOG LISPRO [Suspect]
     Dosage: 5 IU, BID
     Route: 058
     Dates: start: 200905, end: 2010
  4. HUMALOG LISPRO [Suspect]
     Dosage: 6 IU, TID
     Route: 058
     Dates: start: 2010
  5. HUMALOG LISPRO [Suspect]
     Dosage: 6 IU, BID
     Route: 058
     Dates: start: 201004, end: 201004
  6. HUMALOG LISPRO [Suspect]
     Dosage: UNK UNK, TID
     Route: 058
     Dates: start: 201004
  7. HUMALOG 50% LISPRO, 50% NPL [Suspect]
     Indication: DIABETES MELLITUS
     Dosage: 6 IU, EACH MORNING
     Route: 058
     Dates: start: 201004, end: 201004
  8. HUMALOG 50% LISPRO, 50% NPL [Suspect]
     Dosage: 4 IU, EACH MORNING
     Route: 058
     Dates: start: 201004, end: 201004
  9. NOVOLIN N [Concomitant]
     Indication: DIABETES MELLITUS
     Dosage: 3 IU, BID
     Dates: start: 200904, end: 200904
  10. NOVOLIN N [Concomitant]
     Dosage: 6 IU, EACH MORNING
     Dates: start: 200904, end: 200905
  11. NOVOLIN N [Concomitant]
     Dosage: 6 IU, EACH EVENING
     Dates: start: 201004, end: 201004
  12. NOVOLIN N [Concomitant]
     Dosage: 3 IU, EACH EVENING
     Dates: start: 201004, end: 201004
  13. NOVOLIN N [Concomitant]
     Dosage: 2 IU, QD
     Dates: start: 201004

REACTIONS (2)
  - Hyperglycaemia [Recovered/Resolved]
  - Hypoglycaemia [Recovered/Resolved]
